FAERS Safety Report 7750575-X (Version None)
Quarter: 2011Q3

REPORT INFORMATION
  Report Type: 
  Country: None (occurrence: None)
  Receive Date: 20110914
  Receipt Date: 20110907
  Transmission Date: 20111222
  Serious: Yes (Hospitalization)
  Sender: FDA-Public Use
  Company Number: US-AMGEN-USASP2011045947

PATIENT
  Age: 88 Year
  Sex: Male

DRUGS (10)
  1. DIOVAN [Concomitant]
  2. FISH OIL [Concomitant]
  3. ADVAIR DISKUS 100/50 [Concomitant]
  4. LASIX [Concomitant]
  5. ASPIRIN [Concomitant]
  6. GLUCOSAMINE [Concomitant]
  7. AMLODIPINE [Concomitant]
  8. XGEVA [Suspect]
     Indication: PROSTATE CANCER
     Dosage: UNK
     Dates: start: 20110801
  9. PROTONIX [Concomitant]
  10. CENTRUM SILVER                     /01292501/ [Concomitant]

REACTIONS (1)
  - PANCREATITIS [None]
